FAERS Safety Report 4464800-4 (Version None)
Quarter: 2004Q4

REPORT INFORMATION
  Report Type: 
  Country: None (occurrence: None)
  Receive Date: 20041004
  Receipt Date: 20010523
  Transmission Date: 20050328
  Serious: No
  Sender: FDA-Public Use
  Company Number: US-GLAXOSMITHKLINE-A0348123A

PATIENT
  Age: 74 Year
  Sex: Female
  Weight: 77.1 kg

DRUGS (21)
  1. COREG [Suspect]
     Dosage: 3.125MG TWICE PER DAY
     Route: 048
     Dates: start: 20010520
  2. LASIX [Concomitant]
  3. LANOXIN [Concomitant]
     Dosage: .25MG PER DAY
     Dates: start: 20010520
  4. HYZAAR [Concomitant]
  5. TRENTAL [Concomitant]
     Dosage: 400MG THREE TIMES PER DAY
  6. POTASSIUM [Concomitant]
  7. FUROSEMIDE [Concomitant]
     Dosage: 20MG TWICE PER DAY
  8. CLARITIN [Concomitant]
  9. CELEBREX [Concomitant]
     Dosage: 200MG TWICE PER DAY
  10. LIPITOR [Concomitant]
     Dosage: 10MG TWICE PER DAY
  11. QUININE [Concomitant]
  12. PRILOSEC [Concomitant]
     Dosage: 20MG PER DAY
  13. ASPIRIN [Concomitant]
  14. VITAMIN B COMPLEX CAP [Concomitant]
     Dosage: 150U PER DAY
  15. VITAMIN C [Concomitant]
     Dosage: 1000MG THREE TIMES PER DAY
  16. MULTI-VITAMIN [Concomitant]
  17. VITAMIN E [Concomitant]
     Dosage: 400U TWICE PER DAY
  18. TRAZODONE HCL [Concomitant]
     Dosage: 50MG AS REQUIRED
     Dates: start: 20010901
  19. ZYRTEC [Concomitant]
  20. FISH OIL [Concomitant]
  21. BENICAR [Concomitant]

REACTIONS (10)
  - ASTHENIA [None]
  - BLOOD POTASSIUM DECREASED [None]
  - BLOOD PRESSURE DECREASED [None]
  - CARDIAC DISORDER [None]
  - COUGH [None]
  - DIZZINESS [None]
  - FATIGUE [None]
  - NERVOUSNESS [None]
  - OEDEMA PERIPHERAL [None]
  - PYREXIA [None]
